APPROVED DRUG PRODUCT: DIFLUNISAL
Active Ingredient: DIFLUNISAL
Strength: 500MG
Dosage Form/Route: TABLET;ORAL
Application: A203547 | Product #001 | TE Code: AB
Applicant: ZYDUS PHARMACEUTICALS USA INC
Approved: Jun 16, 2017 | RLD: No | RS: No | Type: RX